FAERS Safety Report 9018673 (Version 2)
Quarter: 2013Q2

REPORT INFORMATION
  Report Type: Spontaneous
  Country: ES (occurrence: ES)
  Receive Date: 20130118
  Receipt Date: 20130628
  Transmission Date: 20140414
  Serious: Yes (Hospitalization)
  Sender: FDA-Public Use
  Company Number: ES-AMGEN-ESPSP2011065041

PATIENT
  Age: 79 Year
  Sex: Female

DRUGS (15)
  1. PROLIA [Suspect]
     Indication: HIP FRACTURE
     Dosage: 60 MG, Q6MO
     Route: 058
     Dates: start: 20111102
  2. CALCIUM [Concomitant]
     Indication: HYPOCALCAEMIA
     Dosage: 2 G, UNK
     Route: 048
  3. CALCIUM [Concomitant]
     Route: 042
  4. CHOLECALCIFEROL [Concomitant]
     Route: 048
  5. ATENOLOL [Concomitant]
  6. ISOSORBIDE MONONITRATE [Concomitant]
  7. AMLODIPINE [Concomitant]
  8. ASA [Concomitant]
  9. ATORVASTATIN [Concomitant]
  10. ENALAPRIL [Concomitant]
  11. INSULIN [Concomitant]
  12. PANTOPRAZOLE [Concomitant]
  13. ALMASILATE [Concomitant]
  14. ERYTHROPOIETIN [Concomitant]
  15. VITAMIN D                          /00107901/ [Concomitant]

REACTIONS (1)
  - Hypocalcaemia [Recovered/Resolved]
